FAERS Safety Report 4276961-0 (Version None)
Quarter: 2004Q1

REPORT INFORMATION
  Report Type: 
  Country: None (occurrence: None)
  Receive Date: 20040109
  Receipt Date: 20031229
  Transmission Date: 20041129
  Serious: Yes (Other)
  Sender: FDA-Public Use
  Company Number: 12466066

PATIENT
  Age: 27 Year
  Sex: Male

DRUGS (3)
  1. ETOPOSIDE [Suspect]
     Indication: GERM CELL CANCER
     Dosage: 1500 MG/M2,
     Dates: start: 19990901, end: 19990901
  2. CYCLOPHOSPHAMIDE [Suspect]
     Indication: GERM CELL CANCER
     Dosage: 120 MG/KG,
     Dates: start: 19990801, end: 19990901
  3. CARBOPLATINUM (CARBOPLATIN) [Suspect]
     Indication: GERM CELL CANCER
     Dosage: 2000 MG/M2
     Dates: start: 19990901, end: 19990901

REACTIONS (8)
  - GERM CELL CANCER [None]
  - INFLAMMATION [None]
  - INTESTINAL HYPOMOTILITY [None]
  - MALIGNANT NEOPLASM PROGRESSION [None]
  - NEUTROPENIA [None]
  - PNEUMONIA [None]
  - SEPSIS [None]
  - STEM CELL TRANSPLANT [None]
